FAERS Safety Report 5861568-1 (Version None)
Quarter: 2008Q3

REPORT INFORMATION
  Report Type: 
  Country: None (occurrence: None)
  Receive Date: 20080826
  Receipt Date: 20080819
  Transmission Date: 20090109
  Serious: Yes (Hospitalization)
  Sender: FDA-Public Use
  Company Number: 2008BI016846

PATIENT
  Age: 69 Year
  Sex: Female

DRUGS (6)
  1. TYSABRI [Suspect]
     Indication: MULTIPLE SCLEROSIS
     Dosage: 300 MG;QM;IV
     Route: 042
     Dates: start: 20080310
  2. NEURONTIN [Concomitant]
  3. MULTI-VITAMIN [Concomitant]
  4. DETROL [Concomitant]
  5. VITAMIN B6 [Concomitant]
  6. TRAMADOL HCL [Concomitant]

REACTIONS (4)
  - ECCHYMOSIS [None]
  - INCREASED TENDENCY TO BRUISE [None]
  - PETECHIAE [None]
  - PLATELET COUNT DECREASED [None]
